FAERS Safety Report 10807289 (Version 1)
Quarter: 2015Q1

REPORT INFORMATION
  Report Type: Report from Study
  Country: US (occurrence: US)
  Receive Date: 20150217
  Receipt Date: 20150217
  Transmission Date: 20150721
  Serious: No
  Sender: FDA-Public Use
  Company Number: US-ABBVIE-14K-163-1247110-00

PATIENT
  Sex: Female

DRUGS (3)
  1. HUMIRA [Suspect]
     Active Substance: ADALIMUMAB
     Indication: RHEUMATOID ARTHRITIS
     Dates: start: 20131222
  2. HUMIRA [Suspect]
     Active Substance: ADALIMUMAB
     Dates: start: 20130402
  3. HUMIRA [Suspect]
     Active Substance: ADALIMUMAB
     Dosage: EVERY 4-5 WEEKS

REACTIONS (1)
  - Pruritus generalised [Not Recovered/Not Resolved]
